FAERS Safety Report 22623410 (Version 1)
Quarter: 2023Q2

REPORT INFORMATION
  Report Type: Report from Study
  Country: US (occurrence: US)
  Receive Date: 20230621
  Receipt Date: 20230621
  Transmission Date: 20230721
  Serious: Yes (Hospitalization, Other)
  Sender: FDA-Public Use
  Company Number: US-TAKEDA-2023TUS037171

PATIENT
  Age: 73 Year
  Sex: Female
  Weight: 77.55 kg

DRUGS (21)
  1. TEDUGLUTIDE [Suspect]
     Active Substance: TEDUGLUTIDE
     Indication: Short-bowel syndrome
     Dosage: 3.659 MILLIGRAM, QOD
     Route: 058
     Dates: end: 202212
  2. TEDUGLUTIDE [Suspect]
     Active Substance: TEDUGLUTIDE
     Indication: Short-bowel syndrome
     Dosage: 3.659 MILLIGRAM, QOD
     Route: 058
     Dates: end: 202212
  3. TEDUGLUTIDE [Suspect]
     Active Substance: TEDUGLUTIDE
     Indication: Short-bowel syndrome
     Dosage: 3.659 MILLIGRAM, QOD
     Route: 058
     Dates: end: 202212
  4. TEDUGLUTIDE [Suspect]
     Active Substance: TEDUGLUTIDE
     Indication: Short-bowel syndrome
     Dosage: 3.659 MILLIGRAM, QOD
     Route: 058
     Dates: end: 202212
  5. ACETAMINOPHEN [Concomitant]
     Active Substance: ACETAMINOPHEN
  6. AZELASTINE HYDROCHLORIDE [Concomitant]
     Active Substance: AZELASTINE HYDROCHLORIDE
  7. LISINOPRIL [Concomitant]
     Active Substance: LISINOPRIL
  8. METRONIDAZOLE [Concomitant]
     Active Substance: METRONIDAZOLE
  9. PROLIA [Concomitant]
     Active Substance: DENOSUMAB
  10. HYDROCORTISONE [Concomitant]
     Active Substance: HYDROCORTISONE
  11. LOPERAMIDE [Concomitant]
     Active Substance: LOPERAMIDE
  12. IPRATROPIUM BROMIDE AND ALBUTEROL SULFATE [Concomitant]
     Active Substance: ALBUTEROL SULFATE\IPRATROPIUM BROMIDE
  13. Mcg [Concomitant]
  14. CHOLESTYRAMINE [Concomitant]
     Active Substance: CHOLESTYRAMINE
  15. ZESTRIL [Concomitant]
     Active Substance: LISINOPRIL
  16. MAGNESIUM [Concomitant]
     Active Substance: MAGNESIUM
  17. SERTRALINE HYDROCHLORIDE [Concomitant]
     Active Substance: SERTRALINE HYDROCHLORIDE
  18. IRON [Concomitant]
     Active Substance: IRON
  19. VITAMIN D2 [Concomitant]
     Active Substance: ERGOCALCIFEROL
  20. TRAZODONE HCL [Concomitant]
     Active Substance: TRAZODONE HYDROCHLORIDE
  21. ZINC [Concomitant]
     Active Substance: ZINC

REACTIONS (4)
  - Hernia [Recovered/Resolved]
  - COVID-19 [Unknown]
  - Insurance issue [Unknown]
  - Product use issue [Unknown]

NARRATIVE: CASE EVENT DATE: 20221201
